FAERS Safety Report 4331688-1 (Version None)
Quarter: 2004Q2

REPORT INFORMATION
  Report Type: 
  Country: None (occurrence: None)
  Receive Date: 20040405
  Receipt Date: 20021018
  Transmission Date: 20050107
  Serious: No
  Sender: FDA-Public Use
  Company Number: US-GLAXOSMITHKLINE-A0383741A

PATIENT
  Age: 47 Year
  Sex: Female

DRUGS (3)
  1. FLOVENT [Suspect]
     Indication: ASTHMA
     Dosage: 1PUFF PER DAY
     Route: 055
     Dates: start: 19970101
  2. MAXAIR [Concomitant]
     Dosage: 1PUFF AT NIGHT
  3. RHINOCORT [Concomitant]
     Dosage: 2SPR IN THE MORNING
     Route: 045

REACTIONS (9)
  - ASTHMA [None]
  - CHEST DISCOMFORT [None]
  - CHEST PAIN [None]
  - DYSPNOEA [None]
  - HOARSENESS [None]
  - LARYNGITIS [None]
  - PALPITATIONS [None]
  - PHARMACEUTICAL PRODUCT COMPLAINT [None]
  - THROAT IRRITATION [None]
